FAERS Safety Report 23704980 (Version 3)
Quarter: 2024Q3

REPORT INFORMATION
  Report Type: Spontaneous
  Country: IT (occurrence: IT)
  Receive Date: 20240404
  Receipt Date: 20240828
  Transmission Date: 20241017
  Serious: Yes (Other)
  Sender: SANDOZ
  Company Number: None

PATIENT
  Age: 30 Year
  Sex: Male

DRUGS (20)
  1. ADALIMUMAB [Suspect]
     Active Substance: ADALIMUMAB
     Indication: Erythrodermic psoriasis
     Dosage: 40 MG, Q2W
     Route: 058
  2. ADALIMUMAB [Suspect]
     Active Substance: ADALIMUMAB
     Indication: Psoriatic arthropathy
     Dosage: 80 MG, 40 MG EVERY 2 WK
     Route: 065
  3. ACITRETIN [Suspect]
     Active Substance: ACITRETIN
     Indication: Erythrodermic psoriasis
     Dosage: 25 MG, QD
     Route: 065
  4. CYCLOSPORINE [Suspect]
     Active Substance: CYCLOSPORINE
     Indication: Erythrodermic psoriasis
     Dosage: 200 MG, QD, 150-200 MG/QD
     Route: 065
  5. CYCLOSPORINE [Suspect]
     Active Substance: CYCLOSPORINE
     Indication: Psoriatic arthropathy
     Dosage: 200 MG, QD, 150-200 MG/QD
     Route: 065
  6. ETANERCEPT [Suspect]
     Active Substance: ETANERCEPT
     Dosage: 50 MG, QW (50 MG, Q WEEK)
     Route: 065
  7. ETANERCEPT [Suspect]
     Active Substance: ETANERCEPT
     Indication: Erythrodermic psoriasis
     Dosage: 50 MG, QW, DAILY, INDUCTION DOSAGE, DOSE: 7.0 MG
     Route: 065
  8. ETANERCEPT [Suspect]
     Active Substance: ETANERCEPT
     Dosage: 50 MG, QW, MAINTENANCE DOSE
     Route: 065
  9. ETANERCEPT [Suspect]
     Active Substance: ETANERCEPT
     Dosage: 50 MG, 0.5 WEEK
     Route: 065
  10. ETANERCEPT [Suspect]
     Active Substance: ETANERCEPT
     Dosage: 50 MG, 0.5 WEEK AS OFF LABEL REGIMEN
     Route: 065
  11. INFLIXIMAB [Suspect]
     Active Substance: INFLIXIMAB
     Indication: Psoriatic arthropathy
     Dosage: 5 MG/KG
     Route: 065
  12. METHOTREXATE [Suspect]
     Active Substance: METHOTREXATE
     Indication: Psoriatic arthropathy
     Dosage: 15 MG, QW
     Route: 065
  13. PREDNISONE [Suspect]
     Active Substance: PREDNISONE
     Indication: Erythrodermic psoriasis
     Dosage: 25 MG, QD
     Route: 048
  14. USTEKINUMAB [Suspect]
     Active Substance: USTEKINUMAB
     Indication: Erythrodermic psoriasis
     Dosage: 90 MG
     Route: 065
  15. ETANERCEPT [Concomitant]
     Active Substance: ETANERCEPT
     Dosage: 50 MG, QW MAINTENANCE DOSE
     Route: 065
  16. ETANERCEPT [Concomitant]
     Active Substance: ETANERCEPT
     Dosage: 50 MG, 0.5 WEEK
     Route: 065
  17. ETANERCEPT [Concomitant]
     Active Substance: ETANERCEPT
     Dosage: 50 MG, 0.5 WEEK AS OFF LABEL REGIMEN
     Route: 065
  18. ETANERCEPT [Concomitant]
     Active Substance: ETANERCEPT
     Indication: Erythrodermic psoriasis
     Dosage: 50 MG, Q2W, INDUCTION DOSAGE
     Route: 065
  19. ETANERCEPT [Concomitant]
     Active Substance: ETANERCEPT
     Dosage: 50 MG, QW (50 MG, Q WEEK)
     Route: 065
  20. SECUKINUMAB [Concomitant]
     Active Substance: SECUKINUMAB
     Indication: Erythrodermic psoriasis
     Dosage: 300 MG
     Route: 065

REACTIONS (11)
  - Cushing^s syndrome [Recovering/Resolving]
  - Psoriasis [Recovered/Resolved]
  - Renal failure [Unknown]
  - Dyslipidaemia [Recovering/Resolving]
  - Hepatic enzyme increased [Recovering/Resolving]
  - Treatment failure [Unknown]
  - Concomitant disease progression [Unknown]
  - Hypertension [Unknown]
  - Dyslipidaemia [Recovering/Resolving]
  - Therapeutic product effect incomplete [Unknown]
  - Therapeutic product effect decreased [Unknown]
